FAERS Safety Report 7552901-3 (Version None)
Quarter: 2011Q2

REPORT INFORMATION
  Report Type: 
  Country: None (occurrence: None)
  Receive Date: 20110616
  Receipt Date: 20110223
  Transmission Date: 20111010
  Serious: No
  Sender: FDA-Public Use
  Company Number: US-ASTRAZENECA-2011SE10379

PATIENT
  Age: 82 Year
  Sex: Female

DRUGS (1)
  1. FASLODEX [Suspect]
     Indication: BREAST CANCER
     Route: 030

REACTIONS (7)
  - PRURITUS [None]
  - ASTHENIA [None]
  - HOT FLUSH [None]
  - FATIGUE [None]
  - ERYTHEMA [None]
  - NAUSEA [None]
  - BREAST SWELLING [None]
